FAERS Safety Report 11917686 (Version 14)
Quarter: 2017Q2

REPORT INFORMATION
  Report Type: Spontaneous
  Country: US (occurrence: US)
  Receive Date: 20160114
  Receipt Date: 20170502
  Transmission Date: 20170829
  Serious: Yes (Hospitalization)
  Sender: FDA-Public Use
  Company Number: US-ACTELION-A-US2016-129734

PATIENT
  Age: 54 Year
  Sex: Female
  Weight: 58.96 kg

DRUGS (30)
  1. VITAMIN B COMPLEX [Concomitant]
     Active Substance: CYANOCOBALAMIN\DEXPANTHENOL\NIACINAMIDE\PYRIDOXINE HYDROCHLORIDE\RIBOFLAVIN 5^-PHOSPHATE SODIUM\THIAMINE HYDROCHLORIDE\VITAMIN B COMPLEX
     Dosage: 1 UNK, UNK
  2. POTASSIUM [Concomitant]
     Active Substance: POTASSIUM
     Dosage: 60 MEQ, BID
  3. VITAMIN B12 [Concomitant]
     Active Substance: CYANOCOBALAMIN
     Dosage: 1000 MG, UNK
  4. TOPIRAMATE. [Concomitant]
     Active Substance: TOPIRAMATE
     Dosage: 50 MG, BID
  5. FE [Concomitant]
     Active Substance: IRON
     Dosage: 324 MG, UNK
  6. NATALIZUMAB [Concomitant]
     Active Substance: NATALIZUMAB
     Dosage: UNK, Q1MONTH
     Route: 042
  7. OXCARBAZEPIN [Concomitant]
     Active Substance: OXCARBAZEPINE
     Dosage: 15 MG,(3 TABS) BID
  8. VELETRI [Suspect]
     Active Substance: EPOPROSTENOL
     Indication: PULMONARY ARTERIAL HYPERTENSION
     Dosage: 136 NG/KG, PER MIN
     Route: 042
     Dates: start: 2009
  9. VELETRI [Suspect]
     Active Substance: EPOPROSTENOL
     Dosage: 136 NG/KG, PER MIN
     Route: 042
  10. SILDENAFIL. [Concomitant]
     Active Substance: SILDENAFIL
     Dosage: 40 MG, TID
  11. AMANTADINE. [Concomitant]
     Active Substance: AMANTADINE HYDROCHLORIDE
     Dosage: 100 MG, TID
  12. ASA [Concomitant]
     Active Substance: ASPIRIN
     Dosage: 81 MG, QD
  13. TEMAZEPAM. [Concomitant]
     Active Substance: TEMAZEPAM
     Dosage: 30 MG, QPM
  14. VITAMIN D [Concomitant]
     Active Substance: CHOLECALCIFEROL
  15. DULOXETINE. [Concomitant]
     Active Substance: DULOXETINE
     Dosage: 60 MG, UNK
  16. LOPERAMIDE [Concomitant]
     Active Substance: LOPERAMIDE
     Dosage: 2 MG, PRN
  17. VOLTAREN [Concomitant]
     Active Substance: DICLOFENAC SODIUM
     Dosage: 500 MG, BID
  18. LASIX [Concomitant]
     Active Substance: FUROSEMIDE
     Dosage: 20 MG, TID
  19. FLUTICASONE. [Concomitant]
     Active Substance: FLUTICASONE
     Dosage: UNK, QD
  20. ATIVAN [Concomitant]
     Active Substance: LORAZEPAM
     Dosage: 1 MG, QID
  21. WARFARIN [Concomitant]
     Active Substance: WARFARIN
  22. ADCIRCA [Concomitant]
     Active Substance: TADALAFIL
  23. AMIODARONE [Concomitant]
     Active Substance: AMIODARONE
     Dosage: 200 MG, UNK
  24. TUDORZA PRESSAIR [Concomitant]
     Active Substance: ACLIDINIUM BROMIDE
     Dosage: 400 MCG, 1 PUFF
  25. ALDACTONE [Concomitant]
     Active Substance: SPIRONOLACTONE
     Dosage: 50 MG, BID
  26. VITAMIN E [Concomitant]
     Active Substance: .ALPHA.-TOCOPHEROL
     Dosage: 400 U, UNK
  27. MULTIVITAMIN [Concomitant]
     Active Substance: VITAMINS
  28. PRILOSEC [Concomitant]
     Active Substance: OMEPRAZOLE MAGNESIUM
     Dosage: 20 MG, BID
  29. TRACLEER [Suspect]
     Active Substance: BOSENTAN
     Indication: PULMONARY ARTERIAL HYPERTENSION
     Dosage: 125 MG, BID
     Route: 048
  30. REVATIO [Concomitant]
     Active Substance: SILDENAFIL CITRATE

REACTIONS (17)
  - Lymphadenopathy [Unknown]
  - Atrial fibrillation [Recovering/Resolving]
  - Cold sweat [Unknown]
  - Condition aggravated [Unknown]
  - Cardiac ablation [Unknown]
  - Liver disorder [Unknown]
  - Gastrointestinal haemorrhage [Unknown]
  - Nausea [Unknown]
  - Polypectomy [Recovered/Resolved]
  - Pain in jaw [Unknown]
  - Osteoporosis [Unknown]
  - Acne [Unknown]
  - Atrial flutter [Recovering/Resolving]
  - Abdominal pain [Unknown]
  - Gastrointestinal disorder [Unknown]
  - Oesophagogastroduodenoscopy [Recovered/Resolved]
  - Vomiting [Unknown]
